FAERS Safety Report 23856911 (Version 1)
Quarter: 2024Q2

REPORT INFORMATION
  Report Type: Spontaneous
  Country: CN (occurrence: None)
  Receive Date: 20240515
  Receipt Date: 20240515
  Transmission Date: 20240716
  Serious: Yes (Hospitalization)
  Sender: FDA-Public Use
  Company Number: CN-ROCHE-3563465

PATIENT
  Age: 8 Year
  Sex: Female
  Weight: 24 kg

DRUGS (5)
  1. MABTHERA [Suspect]
     Active Substance: RITUXIMAB
     Indication: Drug therapy
     Dosage: MICROPUMP, INJECTION
     Route: 041
     Dates: start: 20240419, end: 20240420
  2. SODIUM CHLORIDE [Suspect]
     Active Substance: SODIUM CHLORIDE
     Indication: Drug therapy
     Route: 041
     Dates: start: 20240419, end: 20240419
  3. METHYLPREDNISOLONE SODIUM SUCCINATE [Concomitant]
     Active Substance: METHYLPREDNISOLONE SODIUM SUCCINATE
     Dates: start: 20240419
  4. LORATADINE [Concomitant]
     Active Substance: LORATADINE
     Dates: start: 20240419
  5. IBUPROFEN [Concomitant]
     Active Substance: IBUPROFEN
     Dates: start: 20240419

REACTIONS (2)
  - Infusion related reaction [Recovered/Resolved]
  - Off label use [Unknown]

NARRATIVE: CASE EVENT DATE: 20240419
